FAERS Safety Report 10360054 (Version 2)
Quarter: 2015Q1

REPORT INFORMATION
  Report Type: Spontaneous
  Country: US (occurrence: US)
  Receive Date: 20140804
  Receipt Date: 20150116
  Transmission Date: 20150720
  Serious: Yes (Hospitalization)
  Sender: FDA-Public Use
  Company Number: US-BAYER-2014-113446

PATIENT
  Age: 22 Year
  Sex: Female

DRUGS (9)
  1. TUSSIONEX PENNKINETIC [Concomitant]
     Active Substance: CHLORPHENIRAMINE\HYDROCODONE
  2. MIRENA [Suspect]
     Active Substance: LEVONORGESTREL
     Indication: CONTRACEPTION
     Dosage: 20 MCG/24HR, CONT
     Route: 015
     Dates: start: 20130306, end: 20140429
  3. GUAIFENESIN. [Concomitant]
     Active Substance: GUAIFENESIN
  4. NORCO [Concomitant]
     Active Substance: ACETAMINOPHEN\HYDROCODONE BITARTRATE
  5. TRAMADOL [Concomitant]
     Active Substance: TRAMADOL
  6. IBUPROFEN. [Concomitant]
     Active Substance: IBUPROFEN
  7. ALBUTEROL. [Concomitant]
     Active Substance: ALBUTEROL
  8. TYLENOL [Concomitant]
     Active Substance: ACETAMINOPHEN
  9. ZOFRAN [Concomitant]
     Active Substance: ONDANSETRON HYDROCHLORIDE

REACTIONS (3)
  - Injury [None]
  - Uterine perforation [None]
  - Embedded device [None]

NARRATIVE: CASE EVENT DATE: 20130306
